FAERS Safety Report 6698033-8 (Version None)
Quarter: 2010Q2

REPORT INFORMATION
  Report Type: 
  Country: None (occurrence: None)
  Receive Date: 20100427
  Receipt Date: 20100417
  Transmission Date: 20101027
  Serious: Yes (Other)
  Sender: FDA-Public Use
  Company Number: NL-TYCO HEALTHCARE/MALLINCKRODT-T201001069

PATIENT
  Age: 67 Year
  Sex: Male

DRUGS (8)
  1. OCTREOSCAN [Suspect]
     Indication: CARCINOID TUMOUR
     Dosage: 57.99 GBQ, UNK
  2. OCTREOSCAN [Suspect]
     Dosage: UNK
  3. OCTREOSCAN [Suspect]
     Dosage: UNK
  4. OCTREOSCAN [Suspect]
     Dosage: UNK
  5. OCTREOSCAN [Suspect]
     Dosage: UNK
  6. OCTREOSCAN [Suspect]
     Dosage: UNK
  7. OCTREOSCAN [Suspect]
     Dosage: UNK
  8. OCTREOSCAN [Suspect]
     Dosage: UNK

REACTIONS (1)
  - THROMBOCYTOPENIA [None]
